FAERS Safety Report 6965117-6 (Version None)
Quarter: 2010Q3

REPORT INFORMATION
  Report Type: 
  Country: None (occurrence: None)
  Receive Date: 20100903
  Receipt Date: 20100831
  Transmission Date: 20110219
  Serious: Yes (Hospitalization, Other)
  Sender: FDA-Public Use
  Company Number: US-CEPHALON-2010004658

PATIENT
  Sex: Female
  Weight: 49 kg

DRUGS (2)
  1. NUVIGIL [Suspect]
     Indication: NARCOLEPSY
     Route: 048
     Dates: start: 20100816, end: 20100826
  2. NUVIGIL [Suspect]
     Route: 048
     Dates: start: 20100827, end: 20100830

REACTIONS (8)
  - ABNORMAL DREAMS [None]
  - BLOOD PRESSURE INCREASED [None]
  - DRUG PRESCRIBING ERROR [None]
  - HAEMATEMESIS [None]
  - LETHARGY [None]
  - PAIN [None]
  - STEVENS-JOHNSON SYNDROME [None]
  - UPPER RESPIRATORY TRACT INFECTION [None]
